FAERS Safety Report 7888225-4 (Version None)
Quarter: 2011Q4

REPORT INFORMATION
  Report Type: 
  Country: None (occurrence: None)
  Receive Date: 20111103
  Receipt Date: 20111026
  Transmission Date: 20120403
  Serious: Yes (Other)
  Sender: FDA-Public Use
  Company Number: TN-JNJFOC-20111012827

PATIENT
  Age: 46 Year
  Sex: Male

DRUGS (15)
  1. DOXORUBICIN HCL [Suspect]
     Route: 042
  2. CISPLATIN [Suspect]
     Indication: PRIMITIVE NEUROECTODERMAL TUMOUR
     Route: 065
  3. CISPLATIN [Suspect]
     Route: 065
  4. DOXORUBICIN HCL [Suspect]
     Indication: PRIMITIVE NEUROECTODERMAL TUMOUR
     Route: 042
  5. CISPLATIN [Suspect]
     Dosage: CYCLE 5
     Route: 065
  6. CISPLATIN [Suspect]
     Route: 065
  7. IFOSFAMIDE [Suspect]
     Indication: PRIMITIVE NEUROECTODERMAL TUMOUR
     Dosage: CYCLE 5
     Route: 065
  8. IFOSFAMIDE [Suspect]
     Route: 065
  9. IFOSFAMIDE [Suspect]
     Route: 065
  10. IFOSFAMIDE [Suspect]
     Route: 065
  11. DOXORUBICIN HCL [Suspect]
     Route: 042
  12. DOXORUBICIN HCL [Suspect]
     Route: 042
  13. DOXORUBICIN HCL [Suspect]
     Dosage: CYCLE 5
     Route: 042
  14. IFOSFAMIDE [Suspect]
     Route: 065
  15. CISPLATIN [Suspect]
     Route: 065

REACTIONS (3)
  - FEBRILE BONE MARROW APLASIA [None]
  - RENAL FAILURE [None]
  - OFF LABEL USE [None]
